FAERS Safety Report 7268303-3 (Version None)
Quarter: 2011Q1

REPORT INFORMATION
  Report Type: 
  Country: None (occurrence: None)
  Receive Date: 20110201
  Receipt Date: 20110126
  Transmission Date: 20110831
  Serious: Yes (Hospitalization)
  Sender: FDA-Public Use
  Company Number: US-MERCK-1101USA03188

PATIENT
  Age: 68 Year
  Sex: Male

DRUGS (4)
  1. SIMVASTATIN [Concomitant]
     Route: 065
  2. PLAVIX [Concomitant]
     Route: 065
  3. METFORMIN [Concomitant]
     Route: 065
  4. JANUVIA [Suspect]
     Indication: TYPE 2 DIABETES MELLITUS
     Route: 048
     Dates: start: 20100501

REACTIONS (3)
  - MYOCARDIAL INFARCTION [None]
  - FATIGUE [None]
  - MUSCULOSKELETAL PAIN [None]
